FAERS Safety Report 4584479-0 (Version None)
Quarter: 2005Q1

REPORT INFORMATION
  Report Type: 
  Country: None (occurrence: None)
  Receive Date: 20050125
  Receipt Date: 20040930
  Transmission Date: 20050727
  Serious: No
  Sender: FDA-Public Use
  Company Number: USA040979001

PATIENT
  Age: 77 Year
  Sex: Female

DRUGS (2)
  1. FORTEO [Suspect]
     Indication: OSTEOPOROSIS
     Dates: start: 20040903, end: 20040905
  2. ALLEGRA D 24 HOUR [Concomitant]

REACTIONS (5)
  - FEAR [None]
  - FEELING ABNORMAL [None]
  - INFLUENZA [None]
  - NASAL CONGESTION [None]
  - VIRAL INFECTION [None]
